FAERS Safety Report 6902542-3 (Version None)
Quarter: 2010Q3

REPORT INFORMATION
  Report Type: 
  Country: None (occurrence: None)
  Receive Date: 20100730
  Receipt Date: 20100715
  Transmission Date: 20110219
  Serious: Yes (Hospitalization)
  Sender: FDA-Public Use
  Company Number: 2010AC000046

PATIENT
  Age: 66 Year
  Sex: Male

DRUGS (21)
  1. DIGOXIN [Suspect]
     Dosage: 0.25 MG;QD;PO
     Route: 048
     Dates: start: 20080101
  2. DIGOXIN [Suspect]
     Indication: ATRIAL FIBRILLATION
     Dosage: 0.25 MG;QD;PO
     Route: 048
     Dates: start: 19950101, end: 20041001
  3. COUMADIN [Concomitant]
  4. CARTIA XT [Concomitant]
  5. MICARDIS [Concomitant]
  6. COREG [Concomitant]
  7. POTASSIUM CHLORIDE [Concomitant]
  8. LIPITOR [Concomitant]
  9. FUROSEMIDE [Concomitant]
  10. ZAROXOLYN [Concomitant]
  11. INSULIN [Concomitant]
  12. GLUCOSAMINE [Concomitant]
  13. CHONDROITIN [Concomitant]
  14. FOLIC ACID [Concomitant]
  15. ASCORBIC ACID [Concomitant]
  16. FLOMAX [Concomitant]
  17. ZETIA [Concomitant]
  18. LISINOPRIL [Concomitant]
  19. LOVENOX [Concomitant]
  20. AMLODIPINE [Concomitant]
  21. AMBIEN [Concomitant]

REACTIONS (23)
  - ASTHENIA [None]
  - BASAL GANGLIA INFARCTION [None]
  - BLOOD ALBUMIN DECREASED [None]
  - BLOOD GLUCOSE INCREASED [None]
  - BLOOD UREA INCREASED [None]
  - BRADYCARDIA [None]
  - CEREBRAL ATROPHY [None]
  - CEREBROVASCULAR ACCIDENT [None]
  - DIABETIC RETINOPATHY [None]
  - DIZZINESS [None]
  - ECONOMIC PROBLEM [None]
  - FALL [None]
  - HYPERKALAEMIA [None]
  - HYPOGLYCAEMIA [None]
  - LOSS OF CONSCIOUSNESS [None]
  - MULTIPLE INJURIES [None]
  - NODAL ARRHYTHMIA [None]
  - NODAL RHYTHM [None]
  - RENAL FAILURE ACUTE [None]
  - RENAL FAILURE CHRONIC [None]
  - RESPIRATORY ACIDOSIS [None]
  - THERAPEUTIC AGENT TOXICITY [None]
  - TRANSIENT ISCHAEMIC ATTACK [None]
